FAERS Safety Report 4776075-7 (Version None)
Quarter: 2005Q3

REPORT INFORMATION
  Report Type: 
  Country: None (occurrence: None)
  Receive Date: 20050914
  Receipt Date: 20050224
  Transmission Date: 20060218
  Serious: Yes (Other)
  Sender: FDA-Public Use
  Company Number: 163-20785-05020539

PATIENT
  Age: 57 Year
  Sex: Female

DRUGS (1)
  1. THALOMID [Suspect]
     Indication: CHRONIC FATIGUE SYNDROME
     Dosage: 100 MG, DAILY, ORAL
     Route: 048
     Dates: start: 20041206, end: 20041207

REACTIONS (1)
  - HEADACHE [None]
